FAERS Safety Report 18423578 (Version 3)
Quarter: 2020Q4

REPORT INFORMATION
  Report Type: Other
  Country: CA (occurrence: CA)
  Receive Date: 20201023
  Receipt Date: 20201201
  Transmission Date: 20210114
  Serious: Yes (Death, Life-Threatening, Hospitalization, Other)
  Sender: FDA-Public Use
  Company Number: CA-APOTEX-2020AP019955

PATIENT
  Age: 75 Year
  Sex: Male

DRUGS (10)
  1. CLOPIDOGREL [Suspect]
     Active Substance: CLOPIDOGREL BISULFATE
     Indication: PRODUCT USED FOR UNKNOWN INDICATION
     Dosage: UNK
     Route: 065
  2. OFEV [Suspect]
     Active Substance: NINTEDANIB
     Dosage: 100 MILLIGRAM, BID
     Route: 048
  3. OFEV [Suspect]
     Active Substance: NINTEDANIB
     Dosage: 100 MILLIGRAM, BID
     Route: 048
  4. OFEV [Suspect]
     Active Substance: NINTEDANIB
     Indication: IDIOPATHIC PULMONARY FIBROSIS
     Dosage: 150 MILLIGRAM, QD
     Route: 048
  5. RESTORALAX [Concomitant]
     Active Substance: POLYETHYLENE GLYCOL 3350
     Indication: PRODUCT USED FOR UNKNOWN INDICATION
     Dosage: UNK
     Route: 065
  6. OFEV [Suspect]
     Active Substance: NINTEDANIB
     Dosage: 100 MILLIGRAM, QD
     Route: 048
  7. OFEV [Suspect]
     Active Substance: NINTEDANIB
     Dosage: 150 MILLIGRAM, BID
     Route: 048
  8. OFEV [Suspect]
     Active Substance: NINTEDANIB
     Dosage: 150 MILLIGRAM, BID
     Route: 048
  9. OFEV [Suspect]
     Active Substance: NINTEDANIB
     Dosage: 100 MILLIGRAM, BID
     Route: 048
  10. OFEV [Suspect]
     Active Substance: NINTEDANIB
     Dosage: 100 MILLIGRAM, BID
     Route: 048

REACTIONS (35)
  - Diarrhoea [Fatal]
  - Dyspnoea [Fatal]
  - Bowel movement irregularity [Fatal]
  - Idiopathic pulmonary fibrosis [Fatal]
  - Malaise [Fatal]
  - Nasopharyngitis [Fatal]
  - Sunburn [Fatal]
  - Abdominal discomfort [Fatal]
  - Colon cancer [Fatal]
  - Myocardial infarction [Fatal]
  - Nausea [Fatal]
  - Nerve compression [Fatal]
  - Haemorrhage [Fatal]
  - Epistaxis [Fatal]
  - Gastrointestinal haemorrhage [Fatal]
  - Anxiety [Fatal]
  - Constipation [Fatal]
  - Photosensitivity reaction [Fatal]
  - Myocardial ischaemia [Fatal]
  - Abdominal pain [Fatal]
  - Abdominal pain upper [Fatal]
  - Decreased appetite [Fatal]
  - Pain in extremity [Fatal]
  - Pulmonary function test decreased [Fatal]
  - Skin reaction [Fatal]
  - Thrombolysis [Fatal]
  - Intentional product misuse [Fatal]
  - Ear haemorrhage [Fatal]
  - Back injury [Fatal]
  - Gastrointestinal neoplasm [Fatal]
  - Neck pain [Fatal]
  - Stomach mass [Fatal]
  - Surgery [Fatal]
  - Vomiting [Fatal]
  - Drug ineffective [Fatal]
